FAERS Safety Report 14010588 (Version 1)
Quarter: 2017Q3

REPORT INFORMATION
  Report Type: Spontaneous
  Country: US (occurrence: US)
  Receive Date: 20170926
  Receipt Date: 20170926
  Transmission Date: 20171128
  Serious: Yes (Hospitalization, Other)
  Sender: FDA-Public Use
  Company Number: US-BRISTOL-MYERS SQUIBB COMPANY-BMS-2017-083951

PATIENT
  Age: 77 Year
  Sex: Male
  Weight: 62.6 kg

DRUGS (5)
  1. GEMTUZUMAB OZOGAMICIN [Suspect]
     Active Substance: GEMTUZUMAB OZOGAMICIN
     Indication: PRODUCT USED FOR UNKNOWN INDICATION
     Dosage: 5.0 MG, UNK
     Route: 042
     Dates: start: 20170802, end: 20170802
  2. NEXAVAR [Suspect]
     Active Substance: SORAFENIB
     Indication: NEOPLASM
     Dosage: 400 MG, BID
     Route: 048
     Dates: start: 20170817, end: 20170819
  3. GEMTUZUMAB OZOGAMICIN [Suspect]
     Active Substance: GEMTUZUMAB OZOGAMICIN
     Indication: PRODUCT USED FOR UNKNOWN INDICATION
     Dosage: UNK
     Route: 042
     Dates: start: 20170730, end: 20170730
  4. HYDREA [Suspect]
     Active Substance: HYDROXYUREA
     Indication: NEOPLASM
     Dosage: 2000 MG, QD
     Route: 048
     Dates: start: 20170817, end: 20170819
  5. GEMTUZUMAB OZOGAMICIN [Suspect]
     Active Substance: GEMTUZUMAB OZOGAMICIN
     Indication: ACUTE MYELOID LEUKAEMIA
     Dosage: UNK
     Route: 042
     Dates: start: 20170727, end: 20170727

REACTIONS (3)
  - Platelet count decreased [Recovering/Resolving]
  - Melaena [Recovered/Resolved]
  - Epistaxis [Recovered/Resolved]

NARRATIVE: CASE EVENT DATE: 20170821
